FAERS Safety Report 12848824 (Version 1)
Quarter: 2016Q4

REPORT INFORMATION
  Report Type: Spontaneous
  Country: US (occurrence: US)
  Receive Date: 20161014
  Receipt Date: 20161014
  Transmission Date: 20170207
  Serious: No
  Sender: FDA-Public Use
  Company Number: US-JNJFOC-20160812103

PATIENT
  Age: 87 Year
  Sex: Female
  Weight: 83.46 kg

DRUGS (1)
  1. TYLENOL REGULAR STRENGTH [Suspect]
     Active Substance: ACETAMINOPHEN
     Indication: PAIN IN EXTREMITY
     Dosage: DAILY
     Route: 048
     Dates: end: 20160810

REACTIONS (1)
  - Extra dose administered [Unknown]
